FAERS Safety Report 8494137-8 (Version None)
Quarter: 2012Q3

REPORT INFORMATION
  Report Type: 
  Country: None (occurrence: None)
  Receive Date: 20120709
  Receipt Date: 20120703
  Transmission Date: 20120928
  Serious: Yes (Other)
  Sender: FDA-Public Use
  Company Number: US-AMGEN-USASP2012041261

PATIENT
  Age: 56 Year
  Sex: Female

DRUGS (1)
  1. ENBREL [Suspect]
     Indication: PSORIATIC ARTHROPATHY
     Dosage: 25 MG, 2 TIMES/WK
     Dates: start: 20010302

REACTIONS (5)
  - DIABETES MELLITUS [None]
  - URINARY TRACT INFECTION [None]
  - BLEEDING VARICOSE VEIN [None]
  - BLOOD PRESSURE DECREASED [None]
  - DEHYDRATION [None]
